FAERS Safety Report 8900681 (Version 1)
Quarter: 2012Q4

REPORT INFORMATION
  Report Type: 
  Country: US (occurrence: US)
  Receive Date: 20121109
  Receipt Date: 20121109
  Transmission Date: 20130627
  Serious: Yes (Other)
  Sender: FDA-Public Use
  Company Number: US-PFIZER INC-2012276873

PATIENT
  Sex: Female
  Weight: 68.03 kg

DRUGS (3)
  1. DEPO-PROVERA [Suspect]
     Indication: CRAMPS MENSTRUAL
     Dosage: UNK, every 3 months
  2. ACETYLSALICYLIC ACID [Concomitant]
     Dosage: UNK daily
  3. ADVAIR [Concomitant]
     Dosage: UNK

REACTIONS (2)
  - Bone disorder [Not Recovered/Not Resolved]
  - Impaired healing [Unknown]
